FAERS Safety Report 12509673 (Version 3)
Quarter: 2016Q3

REPORT INFORMATION
  Report Type: Spontaneous
  Country: US (occurrence: US)
  Receive Date: 20160629
  Receipt Date: 20160804
  Transmission Date: 20161109
  Serious: No
  Sender: FDA-Public Use
  Company Number: US-ELI_LILLY_AND_COMPANY-US201606007480

PATIENT
  Age: 62 Year
  Sex: Female
  Weight: 69.84 kg

DRUGS (5)
  1. TYVASO [Suspect]
     Active Substance: TREPROSTINIL
     Indication: PULMONARY HYPERTENSION
     Dosage: 3-9 BREATHS (18-64 UG), QID
     Route: 055
     Dates: start: 20160608
  2. TYVASO [Suspect]
     Active Substance: TREPROSTINIL
     Dosage: UNK, OTHER(3-9 BREATHS)
     Route: 055
  3. FUROSEMIDE. [Concomitant]
     Active Substance: FUROSEMIDE
     Indication: DIURETIC THERAPY
  4. ADCIRCA [Suspect]
     Active Substance: TADALAFIL
     Indication: PRODUCT USED FOR UNKNOWN INDICATION
     Dosage: UNK, UNKNOWN
     Route: 065
  5. OPSUMIT [Concomitant]
     Active Substance: MACITENTAN
     Indication: PRODUCT USED FOR UNKNOWN INDICATION
     Dosage: UNK, UNKNOWN
     Route: 065

REACTIONS (13)
  - Abdominal distension [Recovered/Resolved]
  - Fluid retention [Unknown]
  - Oropharyngeal pain [Recovered/Resolved]
  - Constipation [Not Recovered/Not Resolved]
  - Pleuritic pain [Unknown]
  - Headache [Unknown]
  - Dizziness [Unknown]
  - Neck pain [Unknown]
  - Musculoskeletal pain [Unknown]
  - Hypotension [Unknown]
  - Hypertension [Unknown]
  - Oedema peripheral [Unknown]
  - Fatigue [Unknown]

NARRATIVE: CASE EVENT DATE: 20160608
